FAERS Safety Report 8579725-2 (Version None)
Quarter: 2012Q3

REPORT INFORMATION
  Report Type: 
  Country: None (occurrence: None)
  Receive Date: 20120726
  Receipt Date: 20120718
  Transmission Date: 20120928
  Serious: Yes (Hospitalization)
  Sender: FDA-Public Use
  Company Number: 2012-002444

PATIENT
  Age: 80 Year
  Sex: Female

DRUGS (3)
  1. LOXONIN (LOXOPROFEN SODIUM) [Concomitant]
  2. RISEDRONATE SODIUM [Suspect]
     Indication: OSTEITIS DEFORMANS
     Dosage: 17.5 MG DAILY, ORAL
     Route: 048
     Dates: start: 20110510, end: 20110718
  3. MUCOSTA (REBAMIPIDE) [Concomitant]

REACTIONS (5)
  - OESOPHAGITIS [None]
  - ILEUS [None]
  - PERIARTHRITIS [None]
  - PERICARDIAL EFFUSION [None]
  - BLOOD ALKALINE PHOSPHATASE INCREASED [None]
